FAERS Safety Report 24969797 (Version 1)
Quarter: 2025Q1

REPORT INFORMATION
  Report Type: Spontaneous
  Country: US (occurrence: None)
  Receive Date: 20250213
  Receipt Date: 20250213
  Transmission Date: 20250408
  Serious: Yes (Other)
  Sender: FDA-CTU
  Company Number: None

PATIENT
  Sex: Female
  Weight: 89.36 kg

DRUGS (1)
  1. LIVDELZI [Suspect]
     Active Substance: SELADELPAR LYSINE
     Indication: Primary biliary cholangitis
     Dosage: FREQUENCY : DAILY;?
     Route: 048
     Dates: start: 202410, end: 20250110

REACTIONS (2)
  - Therapy cessation [None]
  - Hepatic enzyme increased [None]
